FAERS Safety Report 8161470-9 (Version None)
Quarter: 2012Q1

REPORT INFORMATION
  Report Type: 
  Country: None (occurrence: None)
  Receive Date: 20120224
  Receipt Date: 20110725
  Transmission Date: 20120608
  Serious: No
  Sender: FDA-Public Use
  Company Number: US-MYLANLABS-2011S1012792

PATIENT
  Age: 78 Year
  Sex: Male
  Weight: 104.33 kg

DRUGS (10)
  1. SIMVASTATIN [Concomitant]
  2. ALPRAZOLAM [Suspect]
     Route: 048
  3. ASPIRIN [Concomitant]
  4. METOPROLOL TARTRATE [Concomitant]
  5. PROAIR HFA [Concomitant]
  6. ALPRAZOLAM [Suspect]
     Indication: ANXIETY
     Route: 048
     Dates: start: 20110610
  7. SERTRALINE HYDROCHLORIDE [Concomitant]
  8. ALPRAZOLAM [Suspect]
     Route: 048
     Dates: start: 20110610
  9. LISINOPRIL [Concomitant]
  10. PLAVIX [Concomitant]

REACTIONS (5)
  - PSYCHOMOTOR SKILLS IMPAIRED [None]
  - DRUG INEFFECTIVE [None]
  - SOMNOLENCE [None]
  - DIZZINESS [None]
  - ANXIETY [None]
